FAERS Safety Report 22174724 (Version 2)
Quarter: 2023Q2

REPORT INFORMATION
  Report Type: Spontaneous
  Country: CO (occurrence: CO)
  Receive Date: 20230405
  Receipt Date: 20230613
  Transmission Date: 20230722
  Serious: Yes (Hospitalization)
  Sender: FDA-Public Use
  Company Number: CO-002147023-NVSC2023CO072193

PATIENT

DRUGS (1)
  1. XOLAIR [Suspect]
     Active Substance: OMALIZUMAB
     Indication: Asthma
     Dosage: 375 MG, BIW (FIVE DOSES/ THEN WEEKS)
     Route: 058

REACTIONS (4)
  - Hypersensitivity [Not Recovered/Not Resolved]
  - Cardiomyopathy [Not Recovered/Not Resolved]
  - Skin reaction [Not Recovered/Not Resolved]
  - Multi-organ disorder [Not Recovered/Not Resolved]

NARRATIVE: CASE EVENT DATE: 20230302
